FAERS Safety Report 7112478-3 (Version None)
Quarter: 2010Q4

REPORT INFORMATION
  Report Type: 
  Country: None (occurrence: None)
  Receive Date: 20101119
  Receipt Date: 20100609
  Transmission Date: 20110411
  Serious: Yes (Hospitalization)
  Sender: FDA-Public Use
  Company Number: US-BAYER-200943499NA

PATIENT
  Sex: Female
  Weight: 58 kg

DRUGS (7)
  1. YAZ [Suspect]
     Indication: CONTRACEPTION
     Dates: start: 20080201, end: 20080301
  2. ASACOL [Concomitant]
     Dates: start: 20030101, end: 20080101
  3. PREDNISONE [Concomitant]
     Dates: start: 20030101, end: 20100101
  4. HUMIRA [Concomitant]
     Dates: start: 20080101, end: 20100101
  5. PHENERGAN [Concomitant]
     Dates: start: 20080101, end: 20100101
  6. VICODIN [Concomitant]
  7. COUMADIN [Concomitant]
     Dates: start: 20080301, end: 20091201

REACTIONS (1)
  - DEEP VEIN THROMBOSIS [None]
